FAERS Safety Report 5430955-8 (Version None)
Quarter: 2007Q3

REPORT INFORMATION
  Report Type: 
  Country: None (occurrence: None)
  Receive Date: 20070830
  Receipt Date: 20070822
  Transmission Date: 20080115
  Serious: Yes (Hospitalization, Other)
  Sender: FDA-Public Use
  Company Number: PHBS2007JP13362

PATIENT
  Age: 46 Year
  Sex: Male

DRUGS (3)
  1. RITALIN [Suspect]
     Route: 048
     Dates: start: 20050101, end: 20070801
  2. RITALIN [Suspect]
     Dosage: AROUND 40 TABLETS A DAY
     Route: 048
     Dates: start: 20070801, end: 20070801
  3. RITALIN [Suspect]
     Route: 048
     Dates: start: 20070801, end: 20070808

REACTIONS (6)
  - AGITATION [None]
  - DRUG DEPENDENCE [None]
  - DYSPNOEA [None]
  - MALAISE [None]
  - MOVEMENT DISORDER [None]
  - OVERDOSE [None]
